FAERS Safety Report 7344833-0 (Version None)
Quarter: 2011Q1

REPORT INFORMATION
  Report Type: 
  Country: None (occurrence: None)
  Receive Date: 20110307
  Receipt Date: 20110307
  Transmission Date: 20110831
  Serious: Yes (Life-Threatening, Hospitalization, Other)
  Sender: FDA-Public Use
  Company Number: None

PATIENT
  Age: 28 Year
  Sex: Female
  Weight: 61.2356 kg

DRUGS (1)
  1. AMBIEN [Suspect]
     Indication: INSOMNIA
     Dosage: 10 MG ONCE DAILY PO
     Route: 048
     Dates: start: 20101105, end: 20101116

REACTIONS (14)
  - SNORING [None]
  - TRAUMATIC LUNG INJURY [None]
  - HAEMORRHAGE [None]
  - CARDIOPULMONARY FAILURE [None]
  - AMNESIA [None]
  - DEPRESSION [None]
  - SUICIDE ATTEMPT [None]
  - LACERATION [None]
  - ABNORMAL BEHAVIOUR [None]
  - SOMNAMBULISM [None]
  - UNRESPONSIVE TO STIMULI [None]
  - EMPHYSEMA [None]
  - ANAEMIA [None]
  - CONDITION AGGRAVATED [None]
